FAERS Safety Report 6316829-9 (Version None)
Quarter: 2009Q3

REPORT INFORMATION
  Report Type: 
  Country: None (occurrence: None)
  Receive Date: 20090820
  Receipt Date: 20090811
  Transmission Date: 20100115
  Serious: Yes (Other)
  Sender: FDA-Public Use
  Company Number: GB-ROCHE-612317

PATIENT
  Sex: Male

DRUGS (2)
  1. PEG-INTERFERON ALFA 2A (RO 25-8310) [Suspect]
     Route: 058
     Dates: start: 20080901
  2. RIBAVIRIN [Suspect]
     Dosage: DOSE REPORTED AS 400/600 NO UNITS PROVIDED
     Route: 048
     Dates: start: 20080901

REACTIONS (8)
  - ANAEMIA [None]
  - ANGER [None]
  - DIZZINESS [None]
  - FATIGUE [None]
  - INFLUENZA LIKE ILLNESS [None]
  - PRESYNCOPE [None]
  - SKIN DISORDER [None]
  - VISUAL IMPAIRMENT [None]
